FAERS Safety Report 6594461-X (Version None)
Quarter: 2010Q1

REPORT INFORMATION
  Report Type: 
  Country: None (occurrence: None)
  Receive Date: 20100222
  Receipt Date: 20100210
  Transmission Date: 20100710
  Serious: Yes (Hospitalization, Other)
  Sender: FDA-Public Use
  Company Number: CA-PFIZER INC-2010019132

PATIENT
  Sex: Female

DRUGS (1)
  1. CHAMPIX [Suspect]
     Indication: SMOKING CESSATION THERAPY
     Dosage: UNK
     Dates: start: 20080601

REACTIONS (6)
  - ABNORMAL BEHAVIOUR [None]
  - BIPOLAR DISORDER [None]
  - CATATONIA [None]
  - DECREASED ACTIVITY [None]
  - DEPRESSION [None]
  - SUICIDAL IDEATION [None]
